FAERS Safety Report 8022243-0 (Version None)
Quarter: 2012Q1

REPORT INFORMATION
  Report Type: 
  Country: None (occurrence: None)
  Receive Date: 20120104
  Receipt Date: 20111228
  Transmission Date: 20120608
  Serious: Yes (Other)
  Sender: FDA-Public Use
  Company Number: US-ASTRAZENECA-2009SE22856

PATIENT
  Age: 50 Year
  Sex: Male
  Weight: 95.3 kg

DRUGS (23)
  1. SEROQUEL [Suspect]
     Indication: DEPRESSION
     Route: 048
     Dates: start: 20000101, end: 20080101
  2. SEROQUEL [Suspect]
     Route: 048
     Dates: start: 20060901, end: 20070401
  3. ZYPREXA [Concomitant]
     Dates: start: 20030505
  4. LIBRIUM [Concomitant]
     Indication: DELIRIUM TREMENS
     Dates: start: 20040715
  5. HYDROXYZINE HCL [Concomitant]
     Dates: start: 20030505
  6. SEROQUEL [Suspect]
     Route: 048
     Dates: start: 20030505
  7. ZYPREXA [Concomitant]
     Dates: start: 20040701, end: 20050301
  8. SEROQUEL [Suspect]
     Route: 048
     Dates: start: 20030505
  9. TRAZODONE HCL [Concomitant]
     Dates: start: 20030505
  10. ISOSORBIDE MONONITRATE [Concomitant]
  11. NALTREXONE HYDROCHLORIDE [Concomitant]
     Dates: start: 20030505
  12. VENLAFAXINE HCL [Concomitant]
     Indication: DEPRESSION
     Route: 048
     Dates: start: 20060630
  13. SEROQUEL [Suspect]
     Indication: ANXIETY
     Route: 048
     Dates: start: 20000101, end: 20080101
  14. SEROQUEL [Suspect]
     Route: 048
     Dates: start: 20060901, end: 20070401
  15. ZYPREXA [Concomitant]
     Dates: start: 20050101
  16. FISH OIL CONCENTRATE [Concomitant]
     Indication: CARDIAC DISORDER
     Dosage: 2 CAPSULES TWICE A DAY
     Route: 048
     Dates: start: 20060630
  17. SEROQUEL [Suspect]
     Route: 048
     Dates: start: 20030505
  18. RISPERDAL [Concomitant]
     Dates: start: 20060901, end: 20061101
  19. FISH OIL CONCENTRATE [Concomitant]
     Indication: BLOOD TRIGLYCERIDES INCREASED
     Dosage: 2 CAPSULES TWICE A DAY
     Route: 048
     Dates: start: 20060630
  20. SEROQUEL [Suspect]
     Indication: MENTAL DISORDER
     Route: 048
     Dates: start: 20000101, end: 20080101
  21. SEROQUEL [Suspect]
     Route: 048
     Dates: start: 20060901, end: 20070401
  22. CITALOPRAM HYDROBROMIDE [Concomitant]
     Dosage: 40 MG TAKE ONE AND ONE HALF QAM
     Dates: start: 20030505
  23. ASPIRIN [Concomitant]
     Indication: PROPHYLAXIS
     Dates: start: 20030505

REACTIONS (29)
  - TYPE 1 DIABETES MELLITUS [None]
  - ORGANIC ERECTILE DYSFUNCTION [None]
  - TYPE 2 DIABETES MELLITUS [None]
  - MENTAL DISORDER [None]
  - PARAESTHESIA [None]
  - ONYCHOMYCOSIS [None]
  - NARCISSISTIC PERSONALITY DISORDER [None]
  - DEPRESSION [None]
  - PANCREATITIS [None]
  - DRUG INEFFECTIVE [None]
  - VISION BLURRED [None]
  - DERMATOPHYTOSIS [None]
  - DIABETIC NEUROPATHY [None]
  - BLOOD TRIGLYCERIDES INCREASED [None]
  - SCHIZOPHRENIA [None]
  - DIABETIC KETOACIDOSIS [None]
  - NEUROPATHY PERIPHERAL [None]
  - INSOMNIA [None]
  - VISUAL IMPAIRMENT [None]
  - PSYCHOTIC DISORDER [None]
  - OVERWEIGHT [None]
  - RESTLESSNESS [None]
  - PERSONALITY DISORDER [None]
  - HYPOAESTHESIA [None]
  - ONYCHOGRYPHOSIS [None]
  - ONYCHOLYSIS [None]
  - PANCREATIC ATROPHY [None]
  - PSYCHOSEXUAL DISORDER [None]
  - ANXIETY [None]
